FAERS Safety Report 14288238 (Version 1)
Quarter: 2017Q4

REPORT INFORMATION
  Report Type: Report from Study
  Country: None (occurrence: CA)
  Receive Date: 20171215
  Receipt Date: 20171215
  Transmission Date: 20180321
  Serious: Yes (Hospitalization, Other)
  Sender: FDA-Public Use
  Company Number: CA-ABBVIE-17K-028-2188666-00

PATIENT
  Sex: Male

DRUGS (1)
  1. HUMIRA [Suspect]
     Active Substance: ADALIMUMAB
     Indication: CROHN^S DISEASE
     Route: 058
     Dates: start: 20170404

REACTIONS (4)
  - Intestinal obstruction [Recovered/Resolved]
  - Post procedural complication [Recovered/Resolved]
  - Procedural pain [Recovering/Resolving]
  - Intestinal stenosis [Unknown]

NARRATIVE: CASE EVENT DATE: 2017
